FAERS Safety Report 8112999-0 (Version None)
Quarter: 2012Q1

REPORT INFORMATION
  Report Type: 
  Country: None (occurrence: None)
  Receive Date: 20120203
  Receipt Date: 20120123
  Transmission Date: 20120608
  Serious: Yes (Hospitalization, Other)
  Sender: FDA-Public Use
  Company Number: US-ELI_LILLY_AND_COMPANY-US201112005397

PATIENT
  Sex: Female
  Weight: 50.34 kg

DRUGS (8)
  1. AZOR                               /06230801/ [Concomitant]
     Dosage: 40 NG, UNK
  2. ASPIRIN [Concomitant]
  3. ALBUTEROL [Concomitant]
     Indication: CHRONIC OBSTRUCTIVE PULMONARY DISEASE
  4. FISH OIL [Concomitant]
  5. FORTEO [Suspect]
     Indication: OSTEOPOROSIS
     Dosage: 20 UG, QD
     Route: 058
  6. SPIRIVA [Concomitant]
     Indication: CHRONIC OBSTRUCTIVE PULMONARY DISEASE
  7. AZOR                               /06230801/ [Concomitant]
     Indication: BLOOD PRESSURE
     Dosage: 5 NG, UNK
  8. BENICAR [Concomitant]
     Indication: BLOOD PRESSURE

REACTIONS (8)
  - FEELING ABNORMAL [None]
  - BONE PAIN [None]
  - DIZZINESS [None]
  - BLOOD PRESSURE DECREASED [None]
  - DYSPNOEA [None]
  - CHRONIC OBSTRUCTIVE PULMONARY DISEASE [None]
  - BLOOD PRESSURE INCREASED [None]
  - LUNG DISORDER [None]
